FAERS Safety Report 8408133-X (Version None)
Quarter: 2012Q2

REPORT INFORMATION
  Report Type: 
  Country: None (occurrence: None)
  Receive Date: 20120604
  Receipt Date: 20120525
  Transmission Date: 20120825
  Serious: Yes (Hospitalization, Other)
  Sender: FDA-Public Use
  Company Number: US-JNJFOC-20120516309

PATIENT
  Age: 74 Year
  Sex: Male
  Weight: 104.78 kg

DRUGS (17)
  1. AMLODIPINE [Concomitant]
  2. ASPIRIN [Suspect]
     Dates: start: 20111108
  3. LANTUS [Concomitant]
  4. XARELTO [Suspect]
     Indication: KNEE ARTHROPLASTY
     Route: 048
     Dates: start: 20111108
  5. XARELTO [Suspect]
     Indication: THROMBOSIS PROPHYLAXIS
     Route: 048
     Dates: start: 20111108
  6. SYMLIN [Concomitant]
  7. HYDRALAZINE HCL [Concomitant]
  8. BENICAR [Concomitant]
  9. ALLOPURINOL [Concomitant]
  10. SIMVASTATIN [Concomitant]
  11. SULINDAC [Suspect]
     Indication: ILL-DEFINED DISORDER
  12. INSULIN ASPART [Concomitant]
  13. PRILOSEC [Concomitant]
  14. ASPIRIN [Suspect]
     Indication: ILL-DEFINED DISORDER
     Dates: end: 20111001
  15. BUMEX [Concomitant]
  16. GABAPENTIN [Concomitant]
  17. MENTAX [Concomitant]

REACTIONS (1)
  - GASTROINTESTINAL HAEMORRHAGE [None]
